FAERS Safety Report 6461085-4 (Version None)
Quarter: 2009Q4

REPORT INFORMATION
  Report Type: 
  Country: None (occurrence: None)
  Receive Date: 20091130
  Receipt Date: 20091125
  Transmission Date: 20100525
  Serious: No
  Sender: FDA-Public Use
  Company Number: B0607600A

PATIENT
  Sex: Female

DRUGS (2)
  1. BUPROPION HCL [Suspect]
     Dosage: 300MG PER DAY
     Route: 048
     Dates: start: 20091001
  2. BUPROPION HCL [Suspect]
     Dosage: 150MG PER DAY
     Route: 048
     Dates: start: 20091120

REACTIONS (3)
  - NERVOUSNESS [None]
  - RESPIRATORY DISORDER [None]
  - URTICARIA [None]
